FAERS Safety Report 20790118 (Version 1)
Quarter: 2022Q2

REPORT INFORMATION
  Report Type: Spontaneous
  Country: US (occurrence: None)
  Receive Date: 20220505
  Receipt Date: 20220505
  Transmission Date: 20220721
  Serious: Yes (Hospitalization)
  Sender: FDA-Public Use
  Company Number: None

PATIENT

DRUGS (1)
  1. ERLEADA [Suspect]
     Active Substance: APALUTAMIDE
     Indication: Neoplasm malignant
     Dosage: OTHER FREQUENCY : 4 TABLETS A DAY;?
     Route: 048
     Dates: start: 20220208

REACTIONS (2)
  - Cystitis [None]
  - Therapy interrupted [None]
